FAERS Safety Report 10977136 (Version 3)
Quarter: 2019Q1

REPORT INFORMATION
  Report Type: Spontaneous
  Country: FR (occurrence: FR)
  Receive Date: 20150402
  Receipt Date: 20190129
  Transmission Date: 20190417
  Serious: Yes (Other)
  Sender: FDA-Public Use
  Company Number: FR-009507513-1503FRA014555

PATIENT
  Age: 25 Year
  Sex: Male
  Weight: 42 kg

DRUGS (5)
  1. AUGMENTIN [Concomitant]
     Active Substance: AMOXICILLIN\CLAVULANATE POTASSIUM
     Dosage: UNK
     Dates: end: 20140320
  2. CIFLOX (CIPROFLOXACIN HYDROCHLORIDE (+) HYDROCORTISONE) [Concomitant]
     Active Substance: CIPROFLOXACIN HYDROCHLORIDE\HYDROCORTISONE
     Dosage: UNK
     Dates: end: 20140320
  3. AUGMENTIN [Concomitant]
     Active Substance: AMOXICILLIN\CLAVULANATE POTASSIUM
     Dosage: UNK
     Dates: end: 20140320
  4. REBETOL [Suspect]
     Active Substance: RIBAVIRIN
     Indication: RESPIRATORY SYNCYTIAL VIRUS BRONCHITIS
     Dosage: 400 MILLIGRAM, QD (ALSO REPORTED AS 400 MG, BID)
     Route: 048
     Dates: start: 20140323, end: 20140401
  5. REBETOL [Suspect]
     Active Substance: RIBAVIRIN
     Dosage: 400 MILLIGRAM, QD (ALSO REPORTED AS 400 MG, TID)
     Route: 048
     Dates: start: 2014, end: 20140401

REACTIONS (1)
  - Mixed liver injury [Recovered/Resolved]

NARRATIVE: CASE EVENT DATE: 20140327
